FAERS Safety Report 9207862 (Version 5)
Quarter: 2013Q4

REPORT INFORMATION
  Report Type: Spontaneous
  Country: JP (occurrence: JP)
  Receive Date: 20130403
  Receipt Date: 20131203
  Transmission Date: 20140711
  Serious: Yes (Life-Threatening, Hospitalization)
  Sender: FDA-Public Use
  Company Number: JP-VIIV HEALTHCARE LIMITED-B0878324A

PATIENT
  Age: 72 Year
  Sex: Female

DRUGS (12)
  1. ZIAGEN [Suspect]
     Indication: HIV INFECTION
     Dosage: 300MG TWICE PER DAY
     Route: 048
     Dates: start: 20110303, end: 20130211
  2. EPIVIR [Suspect]
     Indication: HIV INFECTION
     Dosage: 150MG TWICE PER DAY
     Route: 048
     Dates: start: 20110303, end: 20130211
  3. ISENTRESS [Concomitant]
     Indication: HIV INFECTION
     Dosage: 400MG TWICE PER DAY
     Route: 048
     Dates: start: 20110303, end: 20130211
  4. DIOVAN [Concomitant]
     Indication: HYPERTENSION
     Dosage: 80MG PER DAY
     Route: 048
     Dates: end: 20130211
  5. TRICHLORMETHIAZIDE [Concomitant]
     Indication: HYPERTENSION
     Dosage: 2MG PER DAY
     Route: 048
     Dates: end: 20130211
  6. BAYASPIRIN [Concomitant]
     Indication: PROPHYLAXIS
     Dosage: 100MG PER DAY
     Route: 048
     Dates: end: 20130211
  7. PLETAAL [Concomitant]
     Indication: PROPHYLAXIS
     Dosage: 100MG TWICE PER DAY
     Route: 048
     Dates: end: 20130211
  8. AMLODIPINE [Concomitant]
     Indication: HYPERTENSION
     Dosage: 10MG TWICE PER DAY
     Route: 048
     Dates: end: 20130211
  9. ZOPICLONE [Concomitant]
     Indication: INSOMNIA
     Route: 048
     Dates: end: 20130211
  10. LOXOPROFEN [Concomitant]
     Indication: PAIN
     Route: 048
     Dates: start: 20110406, end: 20130211
  11. TEPRENONE [Concomitant]
     Indication: PAIN
     Route: 048
     Dates: start: 20110406, end: 20130211
  12. VICTOZA [Concomitant]
     Indication: DIABETES MELLITUS
     Dosage: .9MG PER DAY
     Route: 058
     Dates: start: 20120307, end: 20130211

REACTIONS (7)
  - Lactic acidosis [Recovering/Resolving]
  - Intestinal ischaemia [Unknown]
  - Abdominal pain [Unknown]
  - Vomiting [Unknown]
  - Depressed level of consciousness [Recovering/Resolving]
  - Cardiac arrest [Recovered/Resolved]
  - Short-bowel syndrome [Unknown]
